FAERS Safety Report 11541807 (Version 1)
Quarter: 2015Q3

REPORT INFORMATION
  Report Type: Spontaneous
  Country: US (occurrence: US)
  Receive Date: 20150923
  Receipt Date: 20150923
  Transmission Date: 20151125
  Serious: No
  Sender: FDA-Public Use
  Company Number: US-WATSON-2015-09482

PATIENT
  Sex: Male

DRUGS (1)
  1. CLEOCIN HYDROCHLORIDE [Suspect]
     Active Substance: CLINDAMYCIN HYDROCHLORIDE
     Indication: INFECTION
     Dosage: 1 DF, TID
     Route: 048

REACTIONS (1)
  - Diarrhoea [Recovered/Resolved]
